FAERS Safety Report 5115414-4 (Version None)
Quarter: 2006Q3

REPORT INFORMATION
  Report Type: 
  Country: None (occurrence: None)
  Receive Date: 20060922
  Receipt Date: 20060908
  Transmission Date: 20061208
  Serious: Yes (Life-Threatening)
  Sender: FDA-Public Use
  Company Number: T200600842

PATIENT
  Age: 55 Year
  Sex: Male
  Weight: 85 kg

DRUGS (9)
  1. HEXABRIX [Suspect]
     Indication: CARDIAC MONITORING
     Dosage: 10 ML, SINGLE, INTRA-ARTERIAL
     Route: 013
     Dates: start: 20060726, end: 20060726
  2. ISOSORBIDE DINITRATE [Suspect]
     Indication: CARDIAC MONITORING
     Dosage: 5 ML, SINGLE, INTRA-ARTERIAL
     Route: 013
     Dates: start: 20060726, end: 20060726
  3. ASPIRIN [Concomitant]
  4. ALLOPURINOL [Concomitant]
  5. ZANTAC [Concomitant]
  6. ISOSORBIDE DINITRATE [Concomitant]
  7. LIVALO (ITAVASTATIN CALCIUM) [Concomitant]
  8. CARVEDILOL [Concomitant]
  9. TICLOPIDINE HCL [Concomitant]

REACTIONS (6)
  - ANAPHYLACTIC SHOCK [None]
  - BRADYCARDIA [None]
  - ELECTROCARDIOGRAM ST SEGMENT DEPRESSION [None]
  - ELECTROCARDIOGRAM ST SEGMENT ELEVATION [None]
  - MYOCARDIAL ISCHAEMIA [None]
  - URINARY INCONTINENCE [None]
